FAERS Safety Report 9135686 (Version 1)
Quarter: 2013Q1

REPORT INFORMATION
  Report Type: Spontaneous
  Country: BE (occurrence: BE)
  Receive Date: 20130304
  Receipt Date: 20130304
  Transmission Date: 20140127
  Serious: Yes (Death, Other)
  Sender: FDA-Public Use
  Company Number: BE-PFIZER INC-2013069409

PATIENT
  Age: 65 Year
  Sex: Female

DRUGS (4)
  1. EPINEPHRINE [Suspect]
     Dosage: 0.28 UG/KG/MIN
  2. EPINEPHRINE [Suspect]
     Dosage: 3.61 UG/KG/MIN
  3. NOREPINEPHRINE [Suspect]
     Dosage: 1.25 UG/KG/H
  4. NOREPINEPHRINE [Suspect]
     Dosage: 1.15 UG/KG/MIN

REACTIONS (2)
  - Haemodynamic instability [Not Recovered/Not Resolved]
  - Cardiogenic shock [Fatal]
